FAERS Safety Report 17579097 (Version 1)
Quarter: 2020Q1

REPORT INFORMATION
  Report Type: Spontaneous
  Country: US (occurrence: US)
  Receive Date: 20200325
  Receipt Date: 20200325
  Transmission Date: 20200409
  Serious: No
  Sender: FDA-Public Use
  Company Number: US-APNAR-000028

PATIENT
  Age: 52 Year
  Sex: Female

DRUGS (24)
  1. AUSTEDO [Suspect]
     Active Substance: DEUTETRABENAZINE
     Indication: PRODUCT USED FOR UNKNOWN INDICATION
  2. WELLBUTRIN XL [Suspect]
     Active Substance: BUPROPION HYDROCHLORIDE
     Indication: PRODUCT USED FOR UNKNOWN INDICATION
  3. HYOSCYAMINE. [Concomitant]
     Active Substance: HYOSCYAMINE
  4. ERGOCALCIFEROL. [Concomitant]
     Active Substance: ERGOCALCIFEROL
  5. ZANTAC [Concomitant]
     Active Substance: RANITIDINE HYDROCHLORIDE
  6. PANTOPRAZOLE [Concomitant]
     Active Substance: PANTOPRAZOLE
  7. MELATONIN [Concomitant]
     Active Substance: MELATONIN
  8. BACLOFEN. [Concomitant]
     Active Substance: BACLOFEN
  9. PREMARIN [Concomitant]
     Active Substance: ESTROGENS, CONJUGATED
  10. TAMSULOSIN [Concomitant]
     Active Substance: TAMSULOSIN
  11. PHAZYME [Concomitant]
     Active Substance: DIMETHICONE 410
  12. ACETYLSALICYLIC ACID [Concomitant]
     Active Substance: ASPIRIN
  13. GABAPENTIN. [Concomitant]
     Active Substance: GABAPENTIN
  14. BUPROPION. [Suspect]
     Active Substance: BUPROPION
     Indication: PRODUCT USED FOR UNKNOWN INDICATION
     Dosage: INCREASED FROM 300 MG TO 450 MG ON 23-SEP-2019
  15. CYTOMEL [Suspect]
     Active Substance: LIOTHYRONINE SODIUM
     Indication: PRODUCT USED FOR UNKNOWN INDICATION
  16. CITRACAL + D3 [Concomitant]
  17. LEVOTHYROXINE. [Concomitant]
     Active Substance: LEVOTHYROXINE
  18. TYLENOL [Concomitant]
     Active Substance: ACETAMINOPHEN
     Dosage: 8 HOUR
  19. MIRALAX [Concomitant]
     Active Substance: POLYETHYLENE GLYCOL 3350
  20. CONCERTA [Concomitant]
     Active Substance: METHYLPHENIDATE HYDROCHLORIDE
  21. PROBIOTIC [Concomitant]
     Active Substance: PROBIOTICS NOS
  22. MELOXICAM. [Concomitant]
     Active Substance: MELOXICAM
  23. BUTRANS [Concomitant]
     Active Substance: BUPRENORPHINE
  24. DICYCLOVERINE [Concomitant]
     Active Substance: DICYCLOMINE HYDROCHLORIDE

REACTIONS (3)
  - Tremor [Not Recovered/Not Resolved]
  - Mood altered [Not Recovered/Not Resolved]
  - Muscle twitching [Not Recovered/Not Resolved]

NARRATIVE: CASE EVENT DATE: 20190906
